FAERS Safety Report 10370297 (Version 1)
Quarter: 2014Q1

REPORT INFORMATION
  Report Type: Spontaneous
  Country: US (occurrence: None)
  Receive Date: 20140306
  Receipt Date: 20140306
  Transmission Date: 20141002
  Serious: Yes (Hospitalization, Other)
  Sender: FDA-Public Use
  Company Number: 163-21880-13064542

PATIENT
  Age: 62 Year
  Sex: Male

DRUGS (5)
  1. REVLIMID [Suspect]
     Indication: MYELODYSPLASTIC SYNDROME
     Route: 048
     Dates: start: 201304
  2. GLIPIZIDE-METFORMIN [Concomitant]
  3. ASPIRIN (ACETYLSALICYLIC ACID) (CHEWABLE TABLET) [Concomitant]
  4. FOLIC ACID [Concomitant]
  5. VITAMIN B6 [Concomitant]

REACTIONS (2)
  - Haemoglobin decreased [None]
  - No therapeutic response [None]
